FAERS Safety Report 8363331-9 (Version None)
Quarter: 2012Q2

REPORT INFORMATION
  Report Type: 
  Country: None (occurrence: None)
  Receive Date: 20120514
  Receipt Date: 20120423
  Transmission Date: 20120825
  Serious: Yes (Hospitalization, Other)
  Sender: FDA-Public Use
  Company Number: 20120109

PATIENT
  Age: 46 Year
  Sex: Female

DRUGS (1)
  1. DEXAMETHASONE SODIUM PHOSPHATE [Suspect]
     Dosage: INJECTION NOS
     Dates: start: 20090101

REACTIONS (21)
  - ANTINUCLEAR ANTIBODY POSITIVE [None]
  - SWELLING [None]
  - CELLULITIS [None]
  - SOFT TISSUE INFECTION [None]
  - BLOOD CHLORIDE INCREASED [None]
  - DEAFNESS NEUROSENSORY [None]
  - STAPHYLOCOCCAL INFECTION [None]
  - WOUND INFECTION [None]
  - MYOSITIS [None]
  - MASS [None]
  - BLOOD UREA NITROGEN/CREATININE RATIO INCREASED [None]
  - OEDEMA PERIPHERAL [None]
  - BLOOD CALCIUM DECREASED [None]
  - CALCINOSIS [None]
  - NORMOCHROMIC NORMOCYTIC ANAEMIA [None]
  - CARBON DIOXIDE DECREASED [None]
  - PAIN [None]
  - FISTULA [None]
  - EXTRAVASATION [None]
  - FAT NECROSIS [None]
  - PURULENCE [None]
